FAERS Safety Report 7748256-1 (Version None)
Quarter: 2011Q3

REPORT INFORMATION
  Report Type: 
  Country: None (occurrence: None)
  Receive Date: 20110913
  Receipt Date: 20110831
  Transmission Date: 20111222
  Serious: Yes (Hospitalization)
  Sender: FDA-Public Use
  Company Number: FR-MYLANLABS-2011S1018611

PATIENT
  Age: 74 Year
  Sex: Female

DRUGS (1)
  1. TRAMADOL HCL [Suspect]
     Route: 065

REACTIONS (2)
  - CONVULSION [None]
  - HYPONATRAEMIA [None]
